FAERS Safety Report 10653485 (Version 5)
Quarter: 2017Q4

REPORT INFORMATION
  Report Type: Spontaneous
  Country: FI (occurrence: FI)
  Receive Date: 20141216
  Receipt Date: 20171031
  Transmission Date: 20180320
  Serious: Yes (Hospitalization, Disabling, Other)
  Sender: FDA-Public Use
  Company Number: FI-ROCHE-1506856

PATIENT
  Age: 67 Year
  Sex: Male

DRUGS (10)
  1. CYCLOPHOSPHAMIDE. [Concomitant]
     Active Substance: CYCLOPHOSPHAMIDE
     Indication: B-CELL LYMPHOMA
     Dosage: 6 CYCLES
     Route: 042
     Dates: start: 20120328, end: 20120805
  2. MABTHERA [Suspect]
     Active Substance: RITUXIMAB
     Dosage: 3 CYCLES
     Route: 042
     Dates: start: 20121005, end: 20130125
  3. VINCRISTINE [Concomitant]
     Active Substance: VINCRISTINE
     Indication: B-CELL LYMPHOMA
     Dosage: 6 CYCLES
     Route: 042
     Dates: start: 20120328, end: 20120805
  4. MABTHERA [Suspect]
     Active Substance: RITUXIMAB
     Dosage: 6 CYCLES
     Route: 042
     Dates: start: 20130325, end: 20130805
  5. MABTHERA [Suspect]
     Active Substance: RITUXIMAB
     Dosage: 6 CYCLES
     Route: 042
     Dates: start: 20131003, end: 20140725
  6. MABTHERA [Suspect]
     Active Substance: RITUXIMAB
     Indication: B-CELL LYMPHOMA
     Dosage: 6 CYCLES
     Route: 042
     Dates: start: 20120327, end: 20120801
  7. DOXORUBICIN [Concomitant]
     Active Substance: DOXORUBICIN
     Indication: B-CELL LYMPHOMA
     Dosage: 6 CYCLES
     Route: 042
     Dates: start: 20120328, end: 20120805
  8. BENDAMUSTINE [Concomitant]
     Active Substance: BENDAMUSTINE
     Indication: B-CELL LYMPHOMA RECURRENT
     Dosage: 6 CYCLES
     Route: 065
     Dates: start: 20130325, end: 20130806
  9. PREDNISOLONE. [Concomitant]
     Active Substance: PREDNISOLONE
     Indication: B-CELL LYMPHOMA
     Dosage: 6 CYCLES
     Route: 042
     Dates: start: 20120328, end: 20120805
  10. MABTHERA [Suspect]
     Active Substance: RITUXIMAB
     Indication: B-CELL LYMPHOMA
     Route: 058
     Dates: start: 20140929, end: 20141127

REACTIONS (11)
  - Urethral discharge [Not Recovered/Not Resolved]
  - Pyuria [Not Recovered/Not Resolved]
  - Pollakiuria [Not Recovered/Not Resolved]
  - Polyomavirus test positive [Not Recovered/Not Resolved]
  - Gastroenteritis [Recovered/Resolved]
  - Febrile infection [Recovered/Resolved]
  - Dysuria [Not Recovered/Not Resolved]
  - Pneumonia [Unknown]
  - Ear infection [Unknown]
  - JC virus test positive [Unknown]
  - Sinusitis [Unknown]

NARRATIVE: CASE EVENT DATE: 20120403
